FAERS Safety Report 17938832 (Version 4)
Quarter: 2020Q3

REPORT INFORMATION
  Report Type: Report from Study
  Country: None (occurrence: BR)
  Receive Date: 20200625
  Receipt Date: 20200803
  Transmission Date: 20201103
  Serious: Yes (Other)
  Sender: FDA-Public Use
  Company Number: BR-ABBVIE-20K-020-3456611-00

PATIENT
  Sex: Female
  Weight: 77 kg

DRUGS (3)
  1. HUMIRA [Suspect]
     Active Substance: ADALIMUMAB
     Route: 058
     Dates: start: 202006
  2. LEFLUNOMIDE. [Concomitant]
     Active Substance: LEFLUNOMIDE
     Indication: RHEUMATOID ARTHRITIS
     Route: 048
  3. HUMIRA [Suspect]
     Active Substance: ADALIMUMAB
     Indication: RHEUMATOID ARTHRITIS
     Route: 058
     Dates: start: 2019, end: 2020

REACTIONS (15)
  - Joint swelling [Recovered/Resolved]
  - Post procedural complication [Not Recovered/Not Resolved]
  - Spinal operation [Recovered/Resolved]
  - Musculoskeletal discomfort [Recovered/Resolved]
  - Gait disturbance [Not Recovered/Not Resolved]
  - Walking aid user [Not Recovered/Not Resolved]
  - Swelling [Recovered/Resolved]
  - Bone disorder [Not Recovered/Not Resolved]
  - Arthralgia [Recovered/Resolved]
  - Peripheral swelling [Recovered/Resolved]
  - Finger deformity [Recovering/Resolving]
  - Skin mass [Not Recovered/Not Resolved]
  - Pain in extremity [Recovered/Resolved]
  - Spinal pain [Not Recovered/Not Resolved]
  - Procedural pain [Not Recovered/Not Resolved]

NARRATIVE: CASE EVENT DATE: 2020
